FAERS Safety Report 23805261 (Version 3)
Quarter: 2024Q2

REPORT INFORMATION
  Report Type: Spontaneous
  Country: US (occurrence: US)
  Receive Date: 20240502
  Receipt Date: 20240621
  Transmission Date: 20240716
  Serious: No
  Sender: FDA-Public Use
  Company Number: US-GSKCCFUS-Case-01991925_AE-110594

PATIENT
  Age: 16 Year
  Sex: Female

DRUGS (1)
  1. VENTOLIN HFA [Suspect]
     Active Substance: ALBUTEROL SULFATE
     Indication: Product used for unknown indication
     Dosage: UNK, 18G 200ACTN

REACTIONS (2)
  - Drug ineffective [Unknown]
  - Product complaint [Unknown]

NARRATIVE: CASE EVENT DATE: 20240426
